FAERS Safety Report 19940804 (Version 1)
Quarter: 2021Q4

REPORT INFORMATION
  Report Type: Spontaneous
  Country: CL (occurrence: CL)
  Receive Date: 20211011
  Receipt Date: 20211011
  Transmission Date: 20220303
  Serious: Yes (Other)
  Sender: FDA-Public Use
  Company Number: CL-PHARMGEN-2021PGLIT00003

PATIENT
  Age: 14 Month
  Sex: Male
  Weight: 3.19 kg

DRUGS (1)
  1. BETAMETHASONE DIPROPIONATE [Suspect]
     Active Substance: BETAMETHASONE DIPROPIONATE
     Indication: Dermatitis
     Dosage: 0.05%
     Route: 061

REACTIONS (3)
  - Cushing^s syndrome [Unknown]
  - Hypertension [Recovering/Resolving]
  - Body height abnormal [Unknown]
